FAERS Safety Report 7201612-2 (Version None)
Quarter: 2010Q4

REPORT INFORMATION
  Report Type: 
  Country: None (occurrence: None)
  Receive Date: 20101229
  Receipt Date: 20101222
  Transmission Date: 20110411
  Serious: Yes (Hospitalization)
  Sender: FDA-Public Use
  Company Number: IT-TEVA-261001ISR

PATIENT
  Sex: Male

DRUGS (1)
  1. ETOPOSIDE [Suspect]

REACTIONS (3)
  - HEADACHE [None]
  - ORAL PAIN [None]
  - PHARYNGEAL DISORDER [None]
